FAERS Safety Report 22810662 (Version 4)
Quarter: 2024Q1

REPORT INFORMATION
  Report Type: Spontaneous
  Country: US (occurrence: US)
  Receive Date: 20230810
  Receipt Date: 20240110
  Transmission Date: 20240410
  Serious: Yes (Other)
  Sender: FDA-Public Use
  Company Number: US-PFIZER INC-PV202300138024

PATIENT
  Age: 76 Year
  Sex: Female
  Weight: 89.2 kg

DRUGS (3)
  1. IBRANCE [Suspect]
     Active Substance: PALBOCICLIB
     Indication: Breast cancer metastatic
     Dosage: 125 MG, CYCLIC (TAKE 1 TABLET BY MOUTH ONCE A DAY, TAKE DAILY FOR 21 OUT OF 28 DAYS)
     Route: 048
  2. IBRANCE [Suspect]
     Active Substance: PALBOCICLIB
     Dosage: 125 MG, CYCLIC (TAKE 1 TABLET BY MOUTH ONCE A DAY, TAKE DAILY FOR 21 OUT OF 28 DAYS)
     Route: 048
     Dates: start: 20230707
  3. IBRANCE [Suspect]
     Active Substance: PALBOCICLIB
     Dosage: 100 MG

REACTIONS (2)
  - Cardiac failure [Unknown]
  - Full blood count decreased [Not Recovered/Not Resolved]
